FAERS Safety Report 18037655 (Version 2)
Quarter: 2020Q3

REPORT INFORMATION
  Report Type: Report from Study
  Country: US (occurrence: US)
  Receive Date: 20200717
  Receipt Date: 20200724
  Transmission Date: 20201103
  Serious: No
  Sender: FDA-Public Use
  Company Number: US-SA-2020SA185126

PATIENT

DRUGS (1)
  1. DUPILUMAB [Suspect]
     Active Substance: DUPILUMAB
     Indication: DERMATITIS ATOPIC
     Dosage: 600 MG, 1X
     Route: 058
     Dates: start: 20200706, end: 20200706

REACTIONS (4)
  - Decreased immune responsiveness [Unknown]
  - Mouth swelling [Unknown]
  - Endodontic procedure [Unknown]
  - Eye discharge [Recovered/Resolved]

NARRATIVE: CASE EVENT DATE: 202007
